FAERS Safety Report 8288521-5 (Version None)
Quarter: 2012Q2

REPORT INFORMATION
  Report Type: 
  Country: None (occurrence: None)
  Receive Date: 20120416
  Receipt Date: 20120406
  Transmission Date: 20120825
  Serious: Yes (Hospitalization)
  Sender: FDA-Public Use
  Company Number: JP-PFIZER INC-2012079532

PATIENT
  Age: 90 Year
  Sex: Female
  Weight: 44.8 kg

DRUGS (9)
  1. INDERAL [Concomitant]
     Indication: HYPERTENSION
     Dosage: UNK
     Dates: start: 19920707
  2. MUCODYNE [Concomitant]
     Indication: BRONCHITIS CHRONIC
     Dosage: UNK
     Dates: start: 19920707
  3. CELEBREX [Suspect]
     Indication: OSTEOARTHRITIS
     Dosage: 100 MG, TWICE DAILY
     Route: 048
     Dates: start: 20120207, end: 20120210
  4. ALFAROL [Concomitant]
     Indication: OSTEOPOROSIS
     Dosage: UNK
     Dates: start: 19970109
  5. ETIZOLAM [Concomitant]
     Indication: INSOMNIA
     Dosage: UNK
     Dates: start: 20010327
  6. PRAVASTATIN SODIUM [Concomitant]
     Indication: HYPERLIPIDAEMIA
     Dosage: UNK
     Dates: start: 19920707
  7. ZOLPIDEM [Suspect]
     Indication: INSOMNIA
     Dosage: 5 MG, 1X/DAY
     Route: 048
     Dates: start: 20091029
  8. PRAVASTATIN SODIUM [Concomitant]
     Route: 048
  9. TRITEREN [Concomitant]
     Indication: CARDIAC FAILURE
     Dosage: UNK
     Dates: start: 20111227

REACTIONS (1)
  - MYOSITIS [None]
